FAERS Safety Report 20001695 (Version 1)
Quarter: 2021Q4

REPORT INFORMATION
  Report Type: Spontaneous
  Country: FR (occurrence: FR)
  Receive Date: 20211027
  Receipt Date: 20211027
  Transmission Date: 20220304
  Serious: Yes (Other)
  Sender: FDA-Public Use
  Company Number: FR-MYLANLABS-2021M1076627

PATIENT
  Sex: Male

DRUGS (5)
  1. SODIUM OXYBATE [Suspect]
     Active Substance: SODIUM OXYBATE
     Indication: Cataplexy
     Dosage: UNK
     Route: 065
  2. VENLAFAXINE [Suspect]
     Active Substance: VENLAFAXINE HYDROCHLORIDE
     Indication: Cataplexy
     Dosage: UNK
     Route: 065
  3. METHYLPHENIDATE [Suspect]
     Active Substance: METHYLPHENIDATE
     Indication: Cataplexy
     Dosage: UNK
     Route: 065
  4. PITOLISANT [Concomitant]
     Active Substance: PITOLISANT
     Indication: Cataplexy
     Dosage: 36 MILLIGRAM
     Route: 065
  5. CLOMIPRAMINE [Concomitant]
     Active Substance: CLOMIPRAMINE
     Indication: Cataplexy
     Dosage: 25 MILLIGRAM
     Route: 065

REACTIONS (3)
  - Drug ineffective [Unknown]
  - Substance-induced psychotic disorder [Recovered/Resolved]
  - Off label use [Unknown]
